FAERS Safety Report 18300918 (Version 1)
Quarter: 2020Q3

REPORT INFORMATION
  Report Type: Spontaneous
  Country: CA (occurrence: CA)
  Receive Date: 20200923
  Receipt Date: 20200923
  Transmission Date: 20201103
  Serious: Yes (Other)
  Sender: FDA-Public Use
  Company Number: CA-ACCORD-202029

PATIENT
  Age: 81 Year
  Sex: Female

DRUGS (2)
  1. NORVASC [Concomitant]
     Active Substance: AMLODIPINE BESYLATE
  2. ROSUVASTATIN. [Suspect]
     Active Substance: ROSUVASTATIN
     Indication: HYPERLIPIDAEMIA

REACTIONS (3)
  - Musculoskeletal pain [Recovered/Resolved]
  - Pain [Recovered/Resolved]
  - Myalgia [Recovered/Resolved]
